FAERS Safety Report 14034943 (Version 1)
Quarter: 2017Q4

REPORT INFORMATION
  Report Type: Report from Study
  Country: HN (occurrence: HN)
  Receive Date: 20171003
  Receipt Date: 20171003
  Transmission Date: 20180321
  Serious: Yes (Other)
  Sender: FDA-Public Use
  Company Number: HN-ASTRAZENECA-2017SE90084

PATIENT
  Age: 62 Year
  Sex: Male

DRUGS (3)
  1. ATACAND [Suspect]
     Active Substance: CANDESARTAN CILEXETIL
     Dosage: 32 MG ONE TABLET PER DAY
     Route: 048
  2. ATACAND [Suspect]
     Active Substance: CANDESARTAN CILEXETIL
     Dosage: 16 MG
     Route: 048
  3. ATACAND [Suspect]
     Active Substance: CANDESARTAN CILEXETIL
     Dosage: 16 MG
     Route: 048

REACTIONS (3)
  - Drug intolerance [Unknown]
  - Blood pressure decreased [Unknown]
  - Drug ineffective [Unknown]
